FAERS Safety Report 18020317 (Version 1)
Quarter: 2020Q3

REPORT INFORMATION
  Report Type: Report from Study
  Country: NL (occurrence: NL)
  Receive Date: 20200714
  Receipt Date: 20200714
  Transmission Date: 20201103
  Serious: Yes (Other)
  Sender: FDA-Public Use
  Company Number: NL-MYLANLABS-2020M1062748

PATIENT
  Sex: Female

DRUGS (2)
  1. GLATIRAMEERACETAAT MYLAN 40 MG/ML [Suspect]
     Active Substance: GLATIRAMER ACETATE
     Dosage: UNK
     Dates: start: 20200703
  2. GLATIRAMEERACETAAT MYLAN 40 MG/ML [Suspect]
     Active Substance: GLATIRAMER ACETATE
     Indication: MULTIPLE SCLEROSIS
     Dosage: UNK, 3XW
     Route: 058

REACTIONS (7)
  - Urinary incontinence [Unknown]
  - Injection site mass [Unknown]
  - Loss of consciousness [Unknown]
  - Malaise [Recovering/Resolving]
  - Injection site irritation [Not Recovered/Not Resolved]
  - Product administered at inappropriate site [Unknown]
  - Headache [Unknown]

NARRATIVE: CASE EVENT DATE: 20200703
